FAERS Safety Report 21869710 (Version 4)
Quarter: 2023Q4

REPORT INFORMATION
  Report Type: Report from Study
  Country: US (occurrence: US)
  Receive Date: 20230117
  Receipt Date: 20231031
  Transmission Date: 20240110
  Serious: Yes (Other)
  Sender: FDA-Public Use
  Company Number: US-ABBVIE-4272002

PATIENT
  Age: 69 Year
  Sex: Male

DRUGS (2)
  1. RINVOQ [Suspect]
     Active Substance: UPADACITINIB
     Indication: Rheumatoid arthritis
     Route: 048
  2. RINVOQ [Suspect]
     Active Substance: UPADACITINIB
     Indication: Rheumatoid arthritis
     Route: 048

REACTIONS (16)
  - Osteoarthritis [Recovering/Resolving]
  - Blood glucose abnormal [Unknown]
  - Muscle strain [Recovering/Resolving]
  - Back pain [Not Recovered/Not Resolved]
  - Red blood cell count abnormal [Unknown]
  - Platelet count abnormal [Unknown]
  - Haemoglobin abnormal [Unknown]
  - Spondylitis [Not Recovered/Not Resolved]
  - Peripheral swelling [Unknown]
  - Thrombosis [Unknown]
  - Back disorder [Not Recovered/Not Resolved]
  - Insomnia [Unknown]
  - Meniscus operation [Unknown]
  - Arthralgia [Not Recovered/Not Resolved]
  - Spinal stenosis [Unknown]
  - Meniscus injury [Unknown]

NARRATIVE: CASE EVENT DATE: 20230911
